FAERS Safety Report 11063178 (Version 1)
Quarter: 2015Q2

REPORT INFORMATION
  Report Type: Spontaneous
  Country: US (occurrence: US)
  Receive Date: 20150424
  Receipt Date: 20150424
  Transmission Date: 20150821
  Serious: No
  Sender: FDA-Public Use
  Company Number: US-ALKERMES INC.-ALK-2015-004456

PATIENT

DRUGS (1)
  1. VIVITROL [Suspect]
     Active Substance: NALTREXONE
     Indication: ALCOHOLISM
     Dosage: 380 MG, QMO
     Route: 030
     Dates: start: 201410, end: 201501

REACTIONS (7)
  - Alcohol abuse [Not Recovered/Not Resolved]
  - Mood altered [Unknown]
  - Fall [Unknown]
  - Tooth loss [Unknown]
  - Feeling abnormal [Unknown]
  - Crying [Unknown]
  - Morbid thoughts [Unknown]
